FAERS Safety Report 15561789 (Version 3)
Quarter: 2019Q1

REPORT INFORMATION
  Report Type: Spontaneous
  Country: US (occurrence: US)
  Receive Date: 20181029
  Receipt Date: 20190108
  Transmission Date: 20190417
  Serious: No
  Sender: FDA-Public Use
  Company Number: US-SA-2018SA292548

PATIENT
  Age: 70 Year
  Sex: Female

DRUGS (3)
  1. TOUJEO [Suspect]
     Active Substance: INSULIN GLARGINE
     Indication: DIABETES MELLITUS
     Dosage: 45-55 UNITS EVERY AM
  2. TOUJEO [Suspect]
     Active Substance: INSULIN GLARGINE
     Dosage: 70 UNITS EVERY AM
  3. TOUJEO [Suspect]
     Active Substance: INSULIN GLARGINE
     Dosage: 56-60 UNITS EVERY AM

REACTIONS (2)
  - Blood glucose increased [Unknown]
  - Device issue [Unknown]
